FAERS Safety Report 17003353 (Version 1)
Quarter: 2019Q4

REPORT INFORMATION
  Report Type: Spontaneous
  Country: BG (occurrence: BG)
  Receive Date: 20191107
  Receipt Date: 20191107
  Transmission Date: 20200122
  Serious: Yes (Hospitalization)
  Sender: FDA-Public Use
  Company Number: BG-JNJFOC-20191102864

PATIENT
  Age: 69 Year
  Sex: Female

DRUGS (2)
  1. RIVAROXABAN [Suspect]
     Active Substance: RIVAROXABAN
     Indication: PULMONARY EMBOLISM
     Route: 048
     Dates: start: 201706
  2. RIVAROXABAN [Suspect]
     Active Substance: RIVAROXABAN
     Indication: DEEP VEIN THROMBOSIS
     Dosage: XARELTO 20 MG
     Route: 048

REACTIONS (6)
  - Tachyarrhythmia [Unknown]
  - Dyspnoea [Unknown]
  - Palpitations [Unknown]
  - Off label use [Unknown]
  - General physical health deterioration [Unknown]
  - Chest discomfort [Unknown]
